FAERS Safety Report 11919720 (Version 1)
Quarter: 2016Q1

REPORT INFORMATION
  Report Type: Spontaneous
  Country: US (occurrence: US)
  Receive Date: 20160115
  Receipt Date: 20160115
  Transmission Date: 20160526
  Serious: Yes (Death, Other)
  Sender: FDA-Public Use
  Company Number: US-TEVA-624693USA

PATIENT
  Age: 77 Year
  Sex: Female

DRUGS (1)
  1. AMIODARONE [Suspect]
     Active Substance: AMIODARONE
     Indication: ATRIAL FIBRILLATION
     Route: 065

REACTIONS (17)
  - Dyspnoea [Unknown]
  - Cough [Unknown]
  - Chest discomfort [Unknown]
  - Depression [Unknown]
  - Visual impairment [Unknown]
  - Muscle spasms [Unknown]
  - Lung infiltration [Unknown]
  - Asthenia [Unknown]
  - Nervousness [Unknown]
  - Restlessness [Unknown]
  - Lung disorder [Fatal]
  - Abdominal pain upper [Unknown]
  - Pulmonary toxicity [Unknown]
  - Wheezing [Unknown]
  - Fatigue [Unknown]
  - Irritability [Unknown]
  - Disturbance in attention [Unknown]
